FAERS Safety Report 25806409 (Version 3)
Quarter: 2025Q3

REPORT INFORMATION
  Report Type: Report from Study
  Country: EU (occurrence: EU)
  Receive Date: 20250916
  Receipt Date: 20250923
  Transmission Date: 20251021
  Serious: Yes (Hospitalization)
  Sender: KARYOPHARM THERAPEUTICS
  Company Number: EU-KARYOPHARM-2024KPT001891

PATIENT
  Sex: Male
  Weight: 94 kg

DRUGS (10)
  1. SELINEXOR [Suspect]
     Active Substance: SELINEXOR
     Indication: Plasma cell myeloma
     Route: 048
     Dates: start: 20241111, end: 20241210
  2. BORTEZOMIB [Suspect]
     Active Substance: BORTEZOMIB
     Indication: Plasma cell myeloma
     Route: 058
     Dates: start: 20241111
  3. DEXAMETHASONE [Suspect]
     Active Substance: DEXAMETHASONE
     Indication: Plasma cell myeloma
     Route: 048
     Dates: start: 20241111
  4. LEVOTHYROXINE [Concomitant]
     Active Substance: LEVOTHYROXINE
     Dates: start: 20230216
  5. ASPIRIN [Concomitant]
     Active Substance: ASPIRIN
     Dates: start: 20110718
  6. IBANDRONATE SODIUM [Concomitant]
     Active Substance: IBANDRONATE SODIUM
     Dates: start: 20160825
  7. ACYCLOVIR SODIUM [Concomitant]
     Active Substance: ACYCLOVIR SODIUM
     Dates: start: 20211223
  8. ONDANSETRON [Concomitant]
     Active Substance: ONDANSETRON
     Dates: start: 20250409
  9. CORTIM [Concomitant]
     Dates: start: 20211223
  10. PEGFILGRASTIM [Concomitant]
     Active Substance: PEGFILGRASTIM
     Dates: start: 20250604

REACTIONS (1)
  - Urinary tract infection [Recovered/Resolved]

NARRATIVE: CASE EVENT DATE: 20241210
